FAERS Safety Report 22637317 (Version 1)
Quarter: 2023Q2

REPORT INFORMATION
  Report Type: Spontaneous
  Country: EG (occurrence: EG)
  Receive Date: 20230626
  Receipt Date: 20230626
  Transmission Date: 20230721
  Serious: Yes (Hospitalization)
  Sender: FDA-Public Use
  Company Number: EG-MYLANLABS-2023M1065697

PATIENT
  Age: 19 Year
  Sex: Female
  Weight: 80 kg

DRUGS (7)
  1. NORVASC [Suspect]
     Active Substance: AMLODIPINE BESYLATE
     Indication: Hypertension
     Dosage: 10 MILLIGRAM, QD (10 MG EVERY 24 HOURS ORALLY,10 MILLIGRAM PERCENT)
     Route: 048
     Dates: start: 20230114, end: 20230122
  2. CARDURA [Suspect]
     Active Substance: DOXAZOSIN MESYLATE
     Indication: Hypertension
     Dosage: 16 MILLIGRAM, BID , BID (2 TABLETS EVERY 12 HOURS ORALLY, 8 MG PERCENT)
     Route: 048
     Dates: start: 20230114, end: 20230122
  3. ALDOMET [Suspect]
     Active Substance: METHYLDOPA
     Indication: Hypertension
     Dosage: 500 MILLIGRAM, TID (500 MG TABLET EVERY 8 HOURS ORALLY, 500 MG PERCENT)
     Route: 048
     Dates: start: 20230114, end: 20230122
  4. CARVEDILOL [Suspect]
     Active Substance: CARVEDILOL
     Indication: Hypertension
     Dosage: 25 MILLIGRAM, BID (25 MG TABLET EVERY 12 HOURS ORALLY.)
     Route: 048
     Dates: start: 20230114, end: 20230122
  5. PROPRANOLOL [Suspect]
     Active Substance: PROPRANOLOL HYDROCHLORIDE
     Indication: Hypertension
     Dosage: 10 MILLIGRAM, TID (10 MG ONE TABLET EVERY 8 HOURS ORALLY)
     Route: 048
     Dates: start: 20230114, end: 20230122
  6. TACROLIMUS [Concomitant]
     Active Substance: TACROLIMUS
     Indication: Prophylaxis against transplant rejection
     Dosage: 1 MILLIGRAM, BID (
     Route: 048
  7. Glucofer [Concomitant]
     Indication: Mineral supplementation
     Dosage: UNK
     Route: 065

REACTIONS (3)
  - Hypertension [Recovered/Resolved]
  - Treatment failure [Recovered/Resolved]
  - Medication error [Unknown]

NARRATIVE: CASE EVENT DATE: 20230114
